FAERS Safety Report 7749393-8 (Version None)
Quarter: 2011Q3

REPORT INFORMATION
  Report Type: 
  Country: None (occurrence: None)
  Receive Date: 20110914
  Receipt Date: 20110912
  Transmission Date: 20111222
  Serious: Yes (Hospitalization)
  Sender: FDA-Public Use
  Company Number: JP-PFIZER INC-2011208173

PATIENT
  Age: 75 Year
  Sex: Male

DRUGS (7)
  1. PURSENNID [Concomitant]
     Dosage: 24 MG/DAY
     Route: 048
  2. ETODOLAC [Concomitant]
     Dosage: 400 MG/DAY
     Route: 048
  3. ESTRACYT [Suspect]
     Dosage: 313.4 MG/DAY
     Route: 048
     Dates: start: 20110612, end: 20110622
  4. PROTECADIN [Concomitant]
     Dosage: 20 MG/DAY
     Route: 048
  5. OXYCONTIN [Concomitant]
     Dosage: 10 MG/DAY
     Route: 048
  6. ESTRACYT [Suspect]
     Indication: PROSTATE CANCER
     Dosage: 626.8 MG/DAY
     Route: 048
     Dates: start: 20110601, end: 20110611
  7. MAGMITT [Concomitant]
     Dosage: 990 MG/DAY
     Route: 048

REACTIONS (5)
  - DECREASED APPETITE [None]
  - VOMITING [None]
  - MALAISE [None]
  - NAUSEA [None]
  - BREAST PAIN [None]
